FAERS Safety Report 5936829-8 (Version None)
Quarter: 2008Q4

REPORT INFORMATION
  Report Type: 
  Country: None (occurrence: None)
  Receive Date: 20081029
  Receipt Date: 20081027
  Transmission Date: 20090506
  Serious: Yes (Hospitalization)
  Sender: FDA-Public Use
  Company Number: 15494

PATIENT
  Age: 40 Year
  Sex: Female

DRUGS (10)
  1. MORPHINE SULFATE [Suspect]
     Indication: PAIN
     Dosage: 60MG THREE TIMES DAILY
     Dates: start: 19980101, end: 20080101
  2. VALIUM [Concomitant]
  3. TRILEPTAL (OXCABAZEPINE) [Concomitant]
  4. SEROQUEL [Concomitant]
  5. CYMBALTA [Concomitant]
  6. LEVOTHYROXINE SODIUM [Concomitant]
  7. HYDROCODONE [Concomitant]
  8. TRAZODONE HCL [Concomitant]
  9. XANAX [Concomitant]
  10. AMANTADINE HCL [Concomitant]

REACTIONS (2)
  - OVERDOSE [None]
  - PRODUCT QUALITY ISSUE [None]
